FAERS Safety Report 7025130-X (Version None)
Quarter: 2010Q4

REPORT INFORMATION
  Report Type: 
  Country: None (occurrence: None)
  Receive Date: 20101001
  Receipt Date: 20100922
  Transmission Date: 20110411
  Serious: Yes (Life-Threatening, Other)
  Sender: FDA-Public Use
  Company Number: JP-PFIZER INC-2010007426

PATIENT
  Age: 70 Year
  Sex: Male
  Weight: 74 kg

DRUGS (6)
  1. VFEND [Suspect]
     Indication: BRONCHOPULMONARY ASPERGILLOSIS
     Dosage: 200 MG, 2X/DAY
     Route: 048
     Dates: start: 20091216, end: 20100111
  2. VFEND [Suspect]
     Dosage: 200 MG, 2X/DAY
     Route: 048
     Dates: start: 20100113, end: 20100115
  3. ACLACINON [Suspect]
     Dosage: 20 MG, 2X/DAY
     Route: 058
     Dates: start: 20100105, end: 20100118
  4. TAKEPRON [Suspect]
     Dosage: 30 MG, 1X/DAY
     Route: 048
  5. CYLOCIDE [Concomitant]
     Dates: start: 20091201
  6. NEUPOGEN [Concomitant]
     Dates: start: 20091201

REACTIONS (2)
  - CARDIAC ARREST [None]
  - TORSADE DE POINTES [None]
